FAERS Safety Report 23368017 (Version 8)
Quarter: 2024Q3

REPORT INFORMATION
  Report Type: Spontaneous
  Country: CA (occurrence: CA)
  Receive Date: 20240105
  Receipt Date: 20240911
  Transmission Date: 20241017
  Serious: Yes (Life-Threatening, Hospitalization, Other)
  Sender: SANDOZ
  Company Number: CA-002147023-PHHY2016CA096795

PATIENT
  Age: 36 Year
  Sex: Male

DRUGS (33)
  1. BORTEZOMIB [Suspect]
     Active Substance: BORTEZOMIB
     Indication: Thrombotic thrombocytopenic purpura
     Dosage: 1.3 MG/M2, (OVER 2 WEEKS (DAY 16, 19, 23 AND 26)
     Route: 042
  2. BORTEZOMIB [Suspect]
     Active Substance: BORTEZOMIB
     Indication: Immunosuppressant drug therapy
     Dosage: 1.3 MG/M2, OVER 2 WEEKS (DAY 16, 19, 23 AND 26).SOLUTION FOR INJECTION
     Route: 042
  3. BORTEZOMIB [Suspect]
     Active Substance: BORTEZOMIB
     Dosage: 3.1 MG,CYCLICAL
     Route: 042
  4. BORTEZOMIB [Suspect]
     Active Substance: BORTEZOMIB
     Dosage: 3.1 MG,CYCLICAL
     Route: 042
  5. CYCLOSPORINE [Suspect]
     Active Substance: CYCLOSPORINE
     Indication: Thrombotic thrombocytopenic purpura
     Dosage: 300 MG, QD (1 EVERY 1 DAYS)
     Route: 048
  6. CYCLOSPORINE [Suspect]
     Active Substance: CYCLOSPORINE
     Indication: Immunosuppressant drug therapy
     Dosage: UNK
     Route: 065
  7. CYCLOPHOSPHAMIDE [Suspect]
     Active Substance: CYCLOPHOSPHAMIDE
     Indication: Immunosuppressant drug therapy
     Dosage: UNK
     Route: 042
  8. CYCLOPHOSPHAMIDE [Suspect]
     Active Substance: CYCLOPHOSPHAMIDE
     Dosage: 1250 MG, 1 EVERY 1 DAY
     Route: 042
  9. CYCLOPHOSPHAMIDE [Suspect]
     Active Substance: CYCLOPHOSPHAMIDE
     Dosage: 2 DF
     Route: 042
  10. CYCLOPHOSPHAMIDE [Suspect]
     Active Substance: CYCLOPHOSPHAMIDE
     Dosage: 200 MG
     Route: 042
  11. CYCLOPHOSPHAMIDE [Suspect]
     Active Substance: CYCLOPHOSPHAMIDE
     Dosage: 750 MG
     Route: 042
  12. CYCLOPHOSPHAMIDE [Suspect]
     Active Substance: CYCLOPHOSPHAMIDE
     Indication: Thrombotic thrombocytopenic purpura
     Dosage: UNK
     Route: 042
  13. METHYLPREDNISOLONE [Suspect]
     Active Substance: METHYLPREDNISOLONE
     Indication: Immunosuppressant drug therapy
     Dosage: 100 MG, QD
     Route: 065
  14. METHYLPREDNISOLONE [Suspect]
     Active Substance: METHYLPREDNISOLONE
     Indication: Thrombotic thrombocytopenic purpura
     Dosage: UNK, 1 EVERY 1 DAY
     Route: 065
  15. METHYLPREDNISOLONE SODIUM SUCCINATE [Suspect]
     Active Substance: METHYLPREDNISOLONE SODIUM SUCCINATE
     Indication: Immunosuppressant drug therapy
     Dosage: UNK, 25 TO 100 MG PER PLASMA EXCHANGE SESSION
     Route: 065
  16. METHYLPREDNISOLONE SODIUM SUCCINATE [Suspect]
     Active Substance: METHYLPREDNISOLONE SODIUM SUCCINATE
     Dosage: 100 MG, Q2W
     Route: 065
  17. METHYLPREDNISOLONE SODIUM SUCCINATE [Suspect]
     Active Substance: METHYLPREDNISOLONE SODIUM SUCCINATE
     Dosage: 100 MG 1 EVERY 2 WEEKS
     Route: 065
  18. METHYLPREDNISOLONE SODIUM SUCCINATE [Suspect]
     Active Substance: METHYLPREDNISOLONE SODIUM SUCCINATE
     Indication: Thrombotic thrombocytopenic purpura
     Dosage: UNK, QD(1 EVERY 1 DAYS)
     Route: 065
  19. ACETYLCYSTEINE [Suspect]
     Active Substance: ACETYLCYSTEINE
     Indication: Thrombotic thrombocytopenic purpura
     Dosage: 18 G, QD(1 EVERY 1 DAYS)
     Route: 042
  20. ACETYLCYSTEINE [Suspect]
     Active Substance: ACETYLCYSTEINE
     Dosage: UNK
     Route: 042
  21. CYCLOPHOSPHAMIDE [Suspect]
     Active Substance: CYCLOPHOSPHAMIDE
     Indication: Thrombotic thrombocytopenic purpura
     Dosage: 1250 MG, TOTAL
     Route: 042
  22. CYCLOPHOSPHAMIDE [Suspect]
     Active Substance: CYCLOPHOSPHAMIDE
     Indication: Immunosuppressant drug therapy
     Dosage: 750 MG, TOTAL
     Route: 042
  23. RITUXIMAB [Suspect]
     Active Substance: RITUXIMAB
     Indication: Immunosuppressant drug therapy
     Dosage: 375 MG, QW(1 EVERY 1 WEEKS)
     Route: 065
  24. RITUXIMAB [Suspect]
     Active Substance: RITUXIMAB
     Dosage: 90 MG, QW
     Route: 042
  25. RITUXIMAB [Suspect]
     Active Substance: RITUXIMAB
     Dosage: 900 MG, QW
     Route: 065
  26. RITUXIMAB [Suspect]
     Active Substance: RITUXIMAB
     Indication: Thrombotic thrombocytopenic purpura
     Dosage: 900 MG, QW(1 EVERY 1 WEEKS)
     Route: 042
  27. RITUXIMAB [Suspect]
     Active Substance: RITUXIMAB
     Dosage: UNK
     Route: 042
  28. RITUXIMAB [Suspect]
     Active Substance: RITUXIMAB
     Dosage: UNK
     Route: 065
  29. ACITRETIN [Concomitant]
     Active Substance: ACITRETIN
     Indication: Psoriasis
     Dosage: UNK
     Route: 065
  30. ACITRETIN [Concomitant]
     Active Substance: ACITRETIN
     Dosage: UNK
     Route: 065
  31. ACITRETIN [Concomitant]
     Active Substance: ACITRETIN
     Route: 065
  32. ACITRETIN [Concomitant]
     Active Substance: ACITRETIN
     Route: 065
  33. ACITRETIN [Concomitant]
     Active Substance: ACITRETIN
     Route: 065

REACTIONS (24)
  - Cerebral infarction [Unknown]
  - Device related sepsis [Unknown]
  - Brain oedema [Unknown]
  - Hemianopia [Unknown]
  - Muscular weakness [Unknown]
  - Cerebrovascular accident [Unknown]
  - Bacteraemia [Unknown]
  - Abdominal abscess [Unknown]
  - Clostridium difficile infection [Unknown]
  - Enterococcal infection [Unknown]
  - Klebsiella infection [Unknown]
  - Staphylococcal sepsis [Unknown]
  - Empyema [Unknown]
  - Candida infection [Unknown]
  - Vascular device infection [Unknown]
  - Sepsis [Unknown]
  - Device related infection [Unknown]
  - Staphylococcal bacteraemia [Unknown]
  - Thrombotic thrombocytopenic purpura [Unknown]
  - Product use in unapproved indication [Unknown]
  - Intentional product misuse [Unknown]
  - Off label use [Unknown]
  - Treatment failure [Unknown]
  - Drug ineffective for unapproved indication [Unknown]
